FAERS Safety Report 21331780 (Version 1)
Quarter: 2022Q3

REPORT INFORMATION
  Report Type: Spontaneous
  Country: FR (occurrence: FR)
  Receive Date: 20220914
  Receipt Date: 20220914
  Transmission Date: 20221027
  Serious: Yes (Hospitalization)
  Sender: FDA-Public Use
  Company Number: None

PATIENT
  Age: 67 Year
  Sex: Male
  Weight: 62 kg

DRUGS (4)
  1. FLUDARABINE PHOSPHATE [Suspect]
     Active Substance: FLUDARABINE PHOSPHATE
     Indication: Bone marrow conditioning regimen
     Dosage: FLUDARABINE (PHOSPHATE DE) , UNIT DOSE : 53 MG  , FREQUENCY TIME : 1 DAY   , DURATION : 2 DAYS
     Dates: start: 20220106, end: 20220108
  2. CYCLOPHOSPHAMIDE [Suspect]
     Active Substance: CYCLOPHOSPHAMIDE
     Indication: Bone marrow conditioning regimen
     Dosage: UNIT DOSE :880 MG   , FREQUENCY TIME : 1 DAY   , DURATION : 2 DAY
     Dates: start: 20220106, end: 20220108
  3. YESCARTA [Suspect]
     Active Substance: AXICABTAGENE CILOLEUCEL
     Indication: Diffuse large B-cell lymphoma
     Dosage: UNIT DOSE : 1 DF , DURATION : 1 DAY
     Dates: start: 20220112, end: 20220112
  4. MESNA [Concomitant]
     Active Substance: MESNA
     Indication: Product used for unknown indication

REACTIONS (2)
  - Immune effector cell-associated neurotoxicity syndrome [Recovered/Resolved]
  - Cytokine release syndrome [Recovered/Resolved]

NARRATIVE: CASE EVENT DATE: 20220113
